FAERS Safety Report 19699445 (Version 1)
Quarter: 2021Q3

REPORT INFORMATION
  Report Type: Spontaneous
  Country: FR (occurrence: FR)
  Receive Date: 20210813
  Receipt Date: 20210813
  Transmission Date: 20211014
  Serious: Yes (Death)
  Sender: FDA-Public Use
  Company Number: FR-TEVA-2021-FR-1940838

PATIENT
  Age: 32 Year
  Sex: Male

DRUGS (5)
  1. DIAZEPAM. [Suspect]
     Active Substance: DIAZEPAM
     Indication: PRODUCT USED FOR UNKNOWN INDICATION
     Dosage: UNKNOWN , THERAPY START DATE : NASK
     Route: 065
     Dates: end: 202004
  2. COCAINE [Suspect]
     Active Substance: COCAINE
     Dosage: UNKNOWN,  THERAPY START DATE : NASK
     Route: 065
     Dates: end: 202004
  3. MIRTAZAPINE. [Suspect]
     Active Substance: MIRTAZAPINE
     Indication: PRODUCT USED FOR UNKNOWN INDICATION
     Dosage: UNKNOWN , THERAPY START DATE : NASK
     Route: 065
     Dates: end: 202004
  4. METHADONE [Suspect]
     Active Substance: METHADONE HYDROCHLORIDE
     Indication: DRUG WITHDRAWAL MAINTENANCE THERAPY
     Dosage: UNKNOWN , THERAPY START DATE : NASK
     Route: 065
     Dates: end: 202004
  5. CANNABIS [Suspect]
     Active Substance: CANNABIS SATIVA SUBSP. INDICA TOP
     Dosage: UNKNOWN , THERAPY START DATE : NASK
     Route: 065
     Dates: end: 202004

REACTIONS (4)
  - Drug abuse [Fatal]
  - Asphyxia [Fatal]
  - Emphysema [Fatal]
  - Brain oedema [Fatal]

NARRATIVE: CASE EVENT DATE: 202004
